FAERS Safety Report 20082413 (Version 2)
Quarter: 2021Q4

REPORT INFORMATION
  Report Type: Spontaneous
  Country: RU (occurrence: RU)
  Receive Date: 20211117
  Receipt Date: 20211126
  Transmission Date: 20220303
  Serious: Yes (Hospitalization, Other)
  Sender: FDA-Public Use
  Company Number: RU-JNJFOC-20211122920

PATIENT
  Age: 47 Year
  Sex: Female
  Weight: 91 kg

DRUGS (6)
  1. UPTRAVI [Suspect]
     Active Substance: SELEXIPAG
     Indication: Pulmonary arterial hypertension
     Route: 048
     Dates: start: 20210906, end: 20211108
  2. MACITENTAN [Concomitant]
     Active Substance: MACITENTAN
  3. SPIRONOLACTONE [Concomitant]
     Active Substance: SPIRONOLACTONE
  4. RIOCIGUAT [Concomitant]
     Active Substance: RIOCIGUAT
  5. ASPIRIN [Concomitant]
     Active Substance: ASPIRIN
  6. FUROSEMIDE [Concomitant]
     Active Substance: FUROSEMIDE

REACTIONS (3)
  - Pulmonary arterial hypertension [Unknown]
  - Cardiac failure chronic [Unknown]
  - Nausea [Unknown]

NARRATIVE: CASE EVENT DATE: 20211104
